FAERS Safety Report 14114532 (Version 1)
Quarter: 2017Q4

REPORT INFORMATION
  Report Type: Spontaneous
  Country: US (occurrence: US)
  Receive Date: 20171023
  Receipt Date: 20171023
  Transmission Date: 20180321
  Serious: Yes (Life-Threatening, Hospitalization)
  Sender: FDA-Public Use
  Company Number: None

PATIENT
  Age: 64 Year
  Sex: Male
  Weight: 93.15 kg

DRUGS (4)
  1. ASPIRIN. [Concomitant]
     Active Substance: ASPIRIN
  2. ANTI HYPERTENSIVES [Concomitant]
  3. SYNTHROID [Concomitant]
     Active Substance: LEVOTHYROXINE SODIUM
  4. GAMUNEX-C [Suspect]
     Active Substance: HUMAN IMMUNOGLOBULIN G
     Indication: IMMUNODEFICIENCY COMMON VARIABLE
     Dosage: ?          QUANTITY:80 GRAMS;?
     Route: 042

REACTIONS (8)
  - Joint swelling [None]
  - Lymphadenopathy [None]
  - Swelling [None]
  - Drug ineffective [None]
  - Lip swelling [None]
  - Eyelid oedema [None]
  - No reaction on previous exposure to drug [None]
  - Obstructive airways disorder [None]

NARRATIVE: CASE EVENT DATE: 20171022
